FAERS Safety Report 10562451 (Version 1)
Quarter: 2014Q4

REPORT INFORMATION
  Report Type: Spontaneous
  Country: US (occurrence: None)
  Receive Date: 20141103
  Receipt Date: 20141103
  Transmission Date: 20150529
  Serious: Yes (Hospitalization)
  Sender: FDA-Public Use
  Company Number: None

PATIENT
  Age: 60 Year
  Sex: Female
  Weight: 90.7 kg

DRUGS (12)
  1. DILAUDID [Concomitant]
     Active Substance: HYDROMORPHONE HYDROCHLORIDE
  2. FOLIC ACID. [Concomitant]
     Active Substance: FOLIC ACID
  3. VITAMIN D [Concomitant]
     Active Substance: CHOLECALCIFEROL
  4. AMITRIPTYLINE [Concomitant]
     Active Substance: AMITRIPTYLINE
  5. FLUOCINONIDE. [Concomitant]
     Active Substance: FLUOCINONIDE
  6. LIPITOR [Concomitant]
     Active Substance: ATORVASTATIN CALCIUM
  7. METOPROLOL [Concomitant]
     Active Substance: METOPROLOL
  8. MAGNESIUM [Concomitant]
     Active Substance: MAGNESIUM
  9. METFORMIN [Concomitant]
     Active Substance: METFORMIN HYDROCHLORIDE
  10. ALIMTA [Suspect]
     Active Substance: PEMETREXED DISODIUM
  11. ALBUTEROL INHALER [Concomitant]
     Active Substance: ALBUTEROL
  12. DULOXETINE [Concomitant]
     Active Substance: DULOXETINE

REACTIONS (10)
  - Swelling [None]
  - Hyperlipidaemia [None]
  - Type 2 diabetes mellitus [None]
  - Hypertension [None]
  - Skin hyperpigmentation [None]
  - Cellulitis [None]
  - Rash [None]
  - Skin reaction [None]
  - Anaemia [None]
  - Hypermagnesaemia [None]

NARRATIVE: CASE EVENT DATE: 20141017
